FAERS Safety Report 24373365 (Version 4)
Quarter: 2024Q4

REPORT INFORMATION
  Report Type: Spontaneous
  Country: US (occurrence: US)
  Receive Date: 20240927
  Receipt Date: 20241014
  Transmission Date: 20250114
  Serious: Yes (Other)
  Sender: AMNEAL
  Company Number: US-AMNEAL PHARMACEUTICALS-2024-AMRX-03455

PATIENT
  Sex: Female
  Weight: 70.295 kg

DRUGS (1)
  1. ADRENACLICK [Suspect]
     Active Substance: EPINEPHRINE
     Indication: Allergy to arthropod sting
     Dosage: 0.3 MILLIGRAM
     Route: 065
     Dates: start: 20240917, end: 20240917

REACTIONS (3)
  - Incorrect dose administered [Not Recovered/Not Resolved]
  - Device failure [Not Recovered/Not Resolved]
  - Device leakage [Not Recovered/Not Resolved]
